FAERS Safety Report 4456926-6 (Version None)
Quarter: 2004Q3

REPORT INFORMATION
  Report Type: 
  Country: None (occurrence: None)
  Receive Date: 20040921
  Receipt Date: 20040915
  Transmission Date: 20050211
  Serious: Yes (Other)
  Sender: FDA-Public Use
  Company Number: 200410886BVD

PATIENT

DRUGS (1)
  1. AVELOX [Suspect]
     Dosage: 400 MG ORAL
     Route: 048

REACTIONS (1)
  - SHOCK [None]
